FAERS Safety Report 8859480 (Version 2)
Quarter: 2012Q4

REPORT INFORMATION
  Report Type: 
  Country: FR (occurrence: FR)
  Receive Date: 20121024
  Receipt Date: 20121121
  Transmission Date: 20130627
  Serious: Yes (Hospitalization)
  Sender: FDA-Public Use
  Company Number: FR-ROCHE-1148245

PATIENT
  Age: 54 Year
  Sex: Female

DRUGS (9)
  1. ZELBORAF [Suspect]
     Indication: MALIGNANT MELANOMA
     Route: 048
     Dates: start: 20120904
  2. SOLIAN [Concomitant]
  3. STILNOX [Concomitant]
  4. EFFEXOR [Concomitant]
  5. AERIUS [Concomitant]
     Route: 065
  6. CORTANCYL [Concomitant]
  7. ATARAX (FRANCE) [Concomitant]
  8. BETNEVAL [Concomitant]
     Route: 065
  9. CORTICOIDS [Concomitant]
     Route: 042

REACTIONS (7)
  - Myalgia [Recovered/Resolved]
  - Arthralgia [Recovered/Resolved]
  - Rash maculo-papular [Recovered/Resolved]
  - Pyrexia [Recovered/Resolved]
  - Odynophagia [Recovered/Resolved]
  - Muscle mass [Unknown]
  - Face oedema [Unknown]
